FAERS Safety Report 6950606-0 (Version None)
Quarter: 2010Q3

REPORT INFORMATION
  Report Type: 
  Country: None (occurrence: None)
  Receive Date: 20100828
  Receipt Date: 20100219
  Transmission Date: 20110219
  Serious: No
  Sender: FDA-Public Use
  Company Number: US-ABBOTT-10P-163-0627580-00

PATIENT
  Sex: Male
  Weight: 108.96 kg

DRUGS (11)
  1. NIASPAN [Suspect]
     Indication: BLOOD TRIGLYCERIDES INCREASED
     Dosage: DAILY AT BEDTIME
     Dates: start: 20100216
  2. NIASPAN [Suspect]
     Indication: BLOOD CHOLESTEROL INCREASED
  3. CYMBALTA [Suspect]
     Indication: PRODUCT USED FOR UNKNOWN INDICATION
     Dates: start: 20100216
  4. STRATTERA [Suspect]
     Indication: PRODUCT USED FOR UNKNOWN INDICATION
     Dates: start: 20100216
  5. CRESTOR [Concomitant]
     Indication: PRODUCT USED FOR UNKNOWN INDICATION
  6. ULORIC ASA [Concomitant]
     Indication: PRODUCT USED FOR UNKNOWN INDICATION
  7. MULTI-VITAMIN [Concomitant]
     Indication: PRODUCT USED FOR UNKNOWN INDICATION
  8. ZANAFLEX [Concomitant]
     Indication: PRODUCT USED FOR UNKNOWN INDICATION
  9. CELEBREX [Concomitant]
     Indication: PRODUCT USED FOR UNKNOWN INDICATION
  10. MICARDIS [Concomitant]
     Indication: PRODUCT USED FOR UNKNOWN INDICATION
  11. HYDROCODONE BITARTRATE [Concomitant]
     Indication: PRODUCT USED FOR UNKNOWN INDICATION

REACTIONS (3)
  - APATHY [None]
  - DIARRHOEA [None]
  - NAUSEA [None]
